FAERS Safety Report 9233850 (Version 1)
Quarter: 2013Q2

REPORT INFORMATION
  Report Type: Spontaneous
  Country: US (occurrence: US)
  Receive Date: 20130416
  Receipt Date: 20130416
  Transmission Date: 20140414
  Serious: No
  Sender: FDA-Public Use
  Company Number: US-BANPHARM-20120110

PATIENT
  Age: 75 Year
  Sex: Female
  Weight: 72.72 kg

DRUGS (2)
  1. ALEVE LIQUID GELS 220 MG [Suspect]
     Indication: ARTHRITIS
     Dosage: LESS THEN 2 DF IN 24 HOURS,
     Route: 048
     Dates: start: 20120823
  2. SYNTHROID [Concomitant]

REACTIONS (1)
  - Drug effect incomplete [Unknown]
